FAERS Safety Report 15647474 (Version 1)
Quarter: 2018Q4

REPORT INFORMATION
  Report Type: Spontaneous
  Country: US (occurrence: US)
  Receive Date: 20181122
  Receipt Date: 20181122
  Transmission Date: 20190205
  Serious: Yes (Hospitalization, Other)
  Sender: FDA-Public Use
  Company Number: US-TEVA-2018-US-977615

PATIENT
  Age: 62 Year
  Sex: Female

DRUGS (5)
  1. MYCOPHENOLATE MOFETIL. [Concomitant]
     Active Substance: MYCOPHENOLATE MOFETIL
     Route: 065
  2. PREDNISONE. [Suspect]
     Active Substance: PREDNISONE
     Route: 065
  3. TACROLIMUS. [Concomitant]
     Active Substance: TACROLIMUS
     Route: 048
  4. TERIPARATIDE [Concomitant]
     Active Substance: TERIPARATIDE
     Route: 058
  5. PENTAMIDINE [Concomitant]
     Active Substance: PENTAMIDINE
     Dosage: EVERY MORNING
     Route: 050

REACTIONS (4)
  - Hip fracture [Recovering/Resolving]
  - Bone marrow oedema [Recovering/Resolving]
  - Osteonecrosis [Recovering/Resolving]
  - Femoral neck fracture [Recovering/Resolving]
